FAERS Safety Report 23351378 (Version 1)
Quarter: 2023Q4

REPORT INFORMATION
  Report Type: Report from Study
  Country: RU (occurrence: None)
  Receive Date: 20231229
  Receipt Date: 20231229
  Transmission Date: 20240110
  Serious: Yes (Other)
  Sender: FDA-Public Use
  Company Number: 2023A293541

PATIENT
  Age: 20 Year
  Sex: Male

DRUGS (3)
  1. PULMICORT TURBUHALER [Suspect]
     Active Substance: BUDESONIDE
     Indication: Asthma
     Dosage: UNKNOWN
     Route: 055
     Dates: start: 1993, end: 1995
  2. DUPIXENT [Concomitant]
     Active Substance: DUPILUMAB
     Dates: start: 2021
  3. FASENRA [Concomitant]
     Active Substance: BENRALIZUMAB
     Dates: start: 2023

REACTIONS (2)
  - Blood pressure increased [Recovered/Resolved]
  - Head discomfort [Recovered/Resolved]

NARRATIVE: CASE EVENT DATE: 19930101
